FAERS Safety Report 24205039 (Version 1)
Quarter: 2024Q3

REPORT INFORMATION
  Report Type: Spontaneous
  Country: PL (occurrence: PL)
  Receive Date: 20240813
  Receipt Date: 20240813
  Transmission Date: 20241017
  Serious: Yes (Other)
  Sender: ROCHE
  Company Number: PL-ROCHE-10000050273

PATIENT
  Sex: Female

DRUGS (1)
  1. PERJETA [Suspect]
     Active Substance: PERTUZUMAB
     Indication: Breast cancer
     Dosage: 26 ADMINISTRATIONS?LAST DOSE ON 10/JUN/2024
     Route: 065
     Dates: start: 20221207

REACTIONS (3)
  - Liver function test increased [Unknown]
  - Metastases to liver [Unknown]
  - Metastases to central nervous system [Unknown]
